FAERS Safety Report 11391861 (Version 4)
Quarter: 2015Q4

REPORT INFORMATION
  Report Type: Report from Study
  Country: CO (occurrence: CO)
  Receive Date: 20150818
  Receipt Date: 20151119
  Transmission Date: 20160304
  Serious: Yes (Hospitalization, Other)
  Sender: FDA-Public Use
  Company Number: CO-BAYER-2015-397665

PATIENT
  Age: 49 Year
  Sex: Female

DRUGS (3)
  1. ONDANSETRON [Concomitant]
     Active Substance: ONDANSETRON
  2. NEXAVAR [Suspect]
     Active Substance: SORAFENIB
     Indication: RENAL CELL CARCINOMA STAGE I
     Dosage: 400 MG, BID
     Route: 048
     Dates: start: 20141127, end: 20151027
  3. OXYCODONE [Concomitant]
     Active Substance: OXYCODONE

REACTIONS (8)
  - Colitis [Not Recovered/Not Resolved]
  - Metastases to the mediastinum [Not Recovered/Not Resolved]
  - Dry skin [Recovered/Resolved]
  - Metastases to central nervous system [Not Recovered/Not Resolved]
  - Diarrhoea [Not Recovered/Not Resolved]
  - Palmar-plantar erythrodysaesthesia syndrome [Not Recovered/Not Resolved]
  - Drug ineffective [None]
  - Constipation [Not Recovered/Not Resolved]

NARRATIVE: CASE EVENT DATE: 20150505
